FAERS Safety Report 9006467 (Version 2)
Quarter: 2013Q1

REPORT INFORMATION
  Report Type: Spontaneous
  Country: US (occurrence: US)
  Receive Date: 20130110
  Receipt Date: 20130211
  Transmission Date: 20140127
  Serious: No
  Sender: FDA-Public Use
  Company Number: US-PFIZER INC-2013011255

PATIENT
  Age: 70 Year
  Sex: Male
  Weight: 122 kg

DRUGS (4)
  1. LYRICA [Suspect]
     Indication: PAIN IN EXTREMITY
     Dosage: 75 MG, DAILY
     Dates: start: 20121226, end: 20121230
  2. LYRICA [Suspect]
     Indication: NEUROPATHY PERIPHERAL
     Dosage: 150 MG, DAILY
     Dates: start: 20121231, end: 20130108
  3. PLAVIX [Concomitant]
     Indication: CEREBROVASCULAR ACCIDENT
     Dosage: 75 MG, DAILY
  4. RAMIPRIL [Concomitant]
     Indication: CEREBROVASCULAR ACCIDENT
     Dosage: 10 MG, DAILY

REACTIONS (2)
  - Pain in extremity [Recovering/Resolving]
  - Muscular weakness [Recovering/Resolving]
